FAERS Safety Report 6682485-3 (Version None)
Quarter: 2010Q2

REPORT INFORMATION
  Report Type: 
  Country: None (occurrence: None)
  Receive Date: 20100415
  Receipt Date: 20100413
  Transmission Date: 20101027
  Serious: Yes (Other)
  Sender: FDA-Public Use
  Company Number: PHHY2009FR54737

PATIENT
  Age: 55 Year
  Sex: Female
  Weight: 60 kg

DRUGS (1)
  1. ACLASTA [Suspect]
     Dosage: 5 MG
     Route: 042

REACTIONS (1)
  - WEIGHT INCREASED [None]
